FAERS Safety Report 20631250 (Version 2)
Quarter: 2022Q1

REPORT INFORMATION
  Report Type: Report from Study
  Country: US (occurrence: US)
  Receive Date: 20220324
  Receipt Date: 20220331
  Transmission Date: 20220423
  Serious: Yes (Hospitalization, Other)
  Sender: FDA-Public Use
  Company Number: US-MALLINCKRODT-T202201065

PATIENT
  Age: 0 Year
  Sex: Male
  Weight: 8 kg

DRUGS (4)
  1. CORTICOTROPIN [Suspect]
     Active Substance: CORTICOTROPIN
     Indication: Infantile spasms
     Dosage: 0.38 MILLILITER, BID FOR 14 DAYS
     Route: 030
     Dates: start: 20220302
  2. CORTICOTROPIN [Suspect]
     Active Substance: CORTICOTROPIN
     Dosage: 0.05 MILLILITRE, DAILY
     Route: 030
  3. KLONOPIN [Concomitant]
     Active Substance: CLONAZEPAM
     Indication: Product used for unknown indication
     Dosage: UNK
     Route: 065
  4. KLONOPIN [Concomitant]
     Active Substance: CLONAZEPAM
     Dosage: UNK, CUT DOWN
     Route: 065

REACTIONS (15)
  - Dehydration [Unknown]
  - Viral diarrhoea [Unknown]
  - Infantile spasms [Recovered/Resolved]
  - Condition aggravated [Recovered/Resolved]
  - Central nervous system haemorrhage [Unknown]
  - Central nervous system lesion [Unknown]
  - Immunodeficiency [Unknown]
  - Mobility decreased [Unknown]
  - Flatulence [Not Recovered/Not Resolved]
  - Abdominal discomfort [Not Recovered/Not Resolved]
  - Abdominal distension [Not Recovered/Not Resolved]
  - Weight increased [Not Recovered/Not Resolved]
  - Injection site pain [Unknown]
  - Hyperphagia [Not Recovered/Not Resolved]
  - Personality change [Recovering/Resolving]

NARRATIVE: CASE EVENT DATE: 20220301
